FAERS Safety Report 17415183 (Version 2)
Quarter: 2020Q1

REPORT INFORMATION
  Report Type: Report from Study
  Country: US (occurrence: US)
  Receive Date: 20200213
  Receipt Date: 20200324
  Transmission Date: 20200409
  Serious: No
  Sender: FDA-Public Use
  Company Number: US-ASTRAZENECA-2020SE16891

PATIENT
  Sex: Female

DRUGS (2)
  1. POLY-VI-SOL [Concomitant]
     Active Substance: VITAMINS
  2. SYNAGIS [Suspect]
     Active Substance: PALIVIZUMAB
     Indication: ANTIVIRAL PROPHYLAXIS
     Route: 030
     Dates: start: 201910

REACTIONS (3)
  - Cough [Unknown]
  - Rhinorrhoea [Unknown]
  - Pyrexia [Unknown]
